FAERS Safety Report 14841106 (Version 2)
Quarter: 2018Q2

REPORT INFORMATION
  Report Type: Spontaneous
  Country: US (occurrence: US)
  Receive Date: 20180503
  Receipt Date: 20180508
  Transmission Date: 20180711
  Serious: Yes (Death)
  Sender: FDA-Public Use
  Company Number: US-CELGENEUS-USA-20180410537

PATIENT
  Sex: Male

DRUGS (7)
  1. REVLIMID [Suspect]
     Active Substance: LENALIDOMIDE
     Dosage: 5 MILLIGRAM
     Route: 048
     Dates: start: 20180105, end: 20180406
  2. IXAZOMIB [Concomitant]
     Active Substance: IXAZOMIB
     Indication: PLASMA CELL MYELOMA
     Dosage: 12.5 MILLIGRAM
     Route: 065
     Dates: start: 20171114, end: 20180404
  3. MIRTAZAPINE. [Concomitant]
     Active Substance: MIRTAZAPINE
     Indication: SCHIZOAFFECTIVE DISORDER
     Dosage: 7.5 MILLIGRAM
     Route: 065
     Dates: start: 20171114, end: 201803
  4. REVLIMID [Suspect]
     Active Substance: LENALIDOMIDE
     Indication: PLASMA CELL MYELOMA
     Dosage: 10 MILLIGRAM
     Route: 048
     Dates: start: 20171127
  5. ACYCLOVIR. [Concomitant]
     Active Substance: ACYCLOVIR
     Indication: PLASMA CELL MYELOMA
     Dosage: 800 MILLIGRAM
     Route: 065
     Dates: start: 20171128, end: 20180406
  6. CARVEDILOL. [Concomitant]
     Active Substance: CARVEDILOL
     Indication: CARDIAC FAILURE CONGESTIVE
     Dosage: 12.5 MILLIGRAM
     Route: 065
     Dates: start: 20171114, end: 20180404
  7. QUETIAPINE. [Concomitant]
     Active Substance: QUETIAPINE
     Indication: SCHIZOAFFECTIVE DISORDER
     Dosage: 300 MILLIGRAM
     Route: 065
     Dates: start: 20171010, end: 20180406

REACTIONS (1)
  - Plasma cell myeloma [Fatal]
